FAERS Safety Report 23327363 (Version 2)
Quarter: 2024Q1

REPORT INFORMATION
  Report Type: Report from Study
  Country: CN (occurrence: CN)
  Receive Date: 20231221
  Receipt Date: 20240117
  Transmission Date: 20240410
  Serious: No
  Sender: FDA-Public Use
  Company Number: CN-PFIZER INC-PV202300204039

PATIENT
  Age: 42 Year
  Sex: Male
  Weight: 90 kg

DRUGS (2)
  1. NIRMATRELVIR\RITONAVIR [Suspect]
     Active Substance: NIRMATRELVIR\RITONAVIR
     Indication: COVID-19
     Dosage: [NIRMATRELVIR 300MG]/[RITONAVIR 100MG], 2X/DAY
     Route: 048
     Dates: start: 20220522, end: 20220528
  2. YI QING [COPTIS SPP. RHIZOME;RHEUM SPP. ROOT WITH RHIZOME;SCUTELLARIA [Concomitant]
     Indication: COVID-19 treatment
     Dosage: UNK
     Route: 048
     Dates: start: 20220522

REACTIONS (1)
  - Overdose [Unknown]
